FAERS Safety Report 12522250 (Version 1)
Quarter: 2016Q3

REPORT INFORMATION
  Report Type: Spontaneous
  Country: JP (occurrence: JP)
  Receive Date: 20160701
  Receipt Date: 20160701
  Transmission Date: 20161109
  Serious: Yes (Life-Threatening, Hospitalization, Disabling, Other)
  Sender: FDA-Public Use
  Company Number: JP-REGENERON PHARMACEUTICALS, INC.-1302-186

PATIENT

DRUGS (4)
  1. EYLEA [Suspect]
     Active Substance: AFLIBERCEPT
     Indication: AGE-RELATED MACULAR DEGENERATION
     Dosage: 2 MG, ONCE
     Route: 031
     Dates: start: 20121211, end: 20121211
  2. GATIFLO [Concomitant]
     Active Substance: GATIFLOXACIN
     Dosage: UNK
     Route: 047
     Dates: start: 20130120, end: 20130126
  3. EYLEA [Suspect]
     Active Substance: AFLIBERCEPT
     Dosage: 2 MG, ONCE
     Route: 031
     Dates: start: 20130123, end: 20130123
  4. GATIFLO [Concomitant]
     Active Substance: GATIFLOXACIN
     Dosage: UNK
     Route: 047
     Dates: start: 20121208, end: 20121214

REACTIONS (1)
  - Cerebral infarction [Recovered/Resolved with Sequelae]

NARRATIVE: CASE EVENT DATE: 20130123
